FAERS Safety Report 18327227 (Version 2)
Quarter: 2021Q1

REPORT INFORMATION
  Report Type: Spontaneous
  Country: US (occurrence: US)
  Receive Date: 20200929
  Receipt Date: 20210226
  Transmission Date: 20210419
  Serious: Yes (Other)
  Sender: FDA-Public Use
  Company Number: US-NOVOPROD-748400

PATIENT
  Age: 81 Year
  Sex: Female

DRUGS (3)
  1. NOVOLOG [Suspect]
     Active Substance: INSULIN ASPART
     Dosage: TOOK 2 MORE UNITS ON (DOSE INCREASED)
     Route: 058
     Dates: start: 20200815
  2. NOVOLOG [Suspect]
     Active Substance: INSULIN ASPART
     Dosage: 9 UNITS[ 2PM (6 UNITS) AND AT 3PM (3 MORE UNITS). ]
     Route: 058
     Dates: start: 20200815
  3. NOVOLOG [Suspect]
     Active Substance: INSULIN ASPART
     Indication: TYPE 1 DIABETES MELLITUS
     Dosage: SLIDING SCALE
     Route: 058
     Dates: start: 2015

REACTIONS (5)
  - Pulmonary oedema [Unknown]
  - Product quality issue [Recovered/Resolved]
  - Blood glucose increased [Unknown]
  - Pneumonia [Unknown]
  - Blood glucose increased [Recovered/Resolved]

NARRATIVE: CASE EVENT DATE: 20200815
